FAERS Safety Report 6723842-6 (Version None)
Quarter: 2010Q2

REPORT INFORMATION
  Report Type: 
  Country: None (occurrence: None)
  Receive Date: 20100513
  Receipt Date: 20100501
  Transmission Date: 20101027
  Serious: Yes (Hospitalization)
  Sender: FDA-Public Use
  Company Number: FR-AMGEN-US407668

PATIENT
  Age: 68 Year
  Sex: Female

DRUGS (1)
  1. ENBREL [Suspect]
     Indication: DRUG USE FOR UNKNOWN INDICATION
     Dosage: UNKNOWN
     Route: 058
     Dates: start: 20010212

REACTIONS (2)
  - COUGH [None]
  - PLEURISY [None]
